FAERS Safety Report 7940870-3 (Version None)
Quarter: 2011Q4

REPORT INFORMATION
  Report Type: 
  Country: None (occurrence: None)
  Receive Date: 20111128
  Receipt Date: 20111122
  Transmission Date: 20120403
  Serious: Yes (Death, Hospitalization, Other)
  Sender: FDA-Public Use
  Company Number: FR-AMGEN-FRASP2011051286

PATIENT
  Age: 66 Year
  Sex: Male
  Weight: 62 kg

DRUGS (8)
  1. FLUTICASONE PROPIONATE/SALMETEROL [Concomitant]
     Indication: CHRONIC OBSTRUCTIVE PULMONARY DISEASE
     Dosage: 500 ABSENT, UNK
     Route: 055
  2. ACETAMINOPHEN AND TRAMADOL HCL [Concomitant]
     Indication: ANALGESIC INTERVENTION SUPPORTIVE THERAPY
     Dosage: UNK, UNK
     Route: 048
  3. NEULASTA [Suspect]
     Indication: CHEMOTHERAPY
     Dosage: 6 MG, UNK
     Route: 058
     Dates: start: 20110530, end: 20110712
  4. ARANESP [Suspect]
     Indication: PRODUCT USED FOR UNKNOWN INDICATION
     Dosage: 500 MUG, UNK
     Route: 058
     Dates: start: 20110530, end: 20110712
  5. VEPESID [Concomitant]
     Dosage: 165 MG, UNK
     Dates: start: 20110712, end: 20110714
  6. CARBOPLATIN [Concomitant]
     Dosage: 385 MG, UNK
     Dates: start: 20110712
  7. NEXIUM [Concomitant]
     Dosage: UNK, UNK
     Route: 048
     Dates: start: 20110711, end: 20110714
  8. LOVENOX [Concomitant]
     Indication: PROPHYLAXIS
     Dosage: 4000 ABSENT, UNK
     Route: 058
     Dates: start: 20110711, end: 20110714

REACTIONS (5)
  - NEUTROPHIL COUNT INCREASED [None]
  - THROMBOCYTOPENIA [None]
  - FEBRILE NEUTROPENIA [None]
  - HAEMOGLOBIN DECREASED [None]
  - LEUKOCYTOSIS [None]
